FAERS Safety Report 9049362 (Version 1)
Quarter: 2013Q1

REPORT INFORMATION
  Report Type: Spontaneous
  Country: US (occurrence: US)
  Receive Date: 20130205
  Receipt Date: 20130205
  Transmission Date: 20140127
  Serious: Yes (Hospitalization)
  Sender: FDA-Public Use
  Company Number: US-TARO-2013P1001587

PATIENT
  Age: 57 Year
  Sex: Female

DRUGS (2)
  1. PHENYTOIN [Suspect]
  2. DEXAMETHASONE [Suspect]

REACTIONS (3)
  - Rash [Recovered/Resolved]
  - Thrombocytopenia [Recovered/Resolved]
  - Drug interaction [Recovered/Resolved]
